FAERS Safety Report 4638897-2 (Version None)
Quarter: 2005Q2

REPORT INFORMATION
  Report Type: 
  Country: None (occurrence: None)
  Receive Date: 20050419
  Receipt Date: 20050415
  Transmission Date: 20051028
  Serious: Yes (Hospitalization)
  Sender: FDA-Public Use
  Company Number: PHBS2005CH05340

PATIENT
  Age: 51 Year
  Sex: Female

DRUGS (19)
  1. DIFLUCAN [Suspect]
     Dosage: 200 MG/D
     Route: 048
     Dates: start: 20050218
  2. ANTRA [Suspect]
     Dosage: 20 MG/D
     Route: 048
     Dates: start: 20050218
  3. LIQUAEMIN INJ [Concomitant]
     Route: 042
     Dates: start: 20050207
  4. PROCICLIDE [Concomitant]
     Dosage: 1600 MG/D
     Route: 048
     Dates: start: 20050207
  5. DAFALGAN [Concomitant]
     Dosage: 1000 MG/D
     Route: 065
     Dates: start: 20050207
  6. FLAGYL [Concomitant]
     Dosage: 1500 MG/D
     Route: 048
     Dates: start: 20050218
  7. TARGOCID [Concomitant]
     Dosage: 800 MG/D
     Route: 042
  8. ULCOGANT [Concomitant]
     Dosage: 3 G/D
     Route: 048
     Dates: start: 20050222
  9. MORPHINE [Suspect]
     Dosage: 22 MG/D DECREASING DOSE
     Route: 042
     Dates: start: 20050218, end: 20050301
  10. ZOVIRAX [Suspect]
     Dosage: 800 MG/D
     Route: 048
     Dates: start: 20050214
  11. MAXIPIME [Suspect]
     Dosage: 6 G/D
     Route: 065
     Dates: start: 20050218
  12. TEMESTA [Suspect]
     Dosage: 1 MG/D
     Route: 048
     Dates: start: 20050207
  13. LEUCOVORIN CALCIUM [Concomitant]
     Dosage: 24 MG/D
     Route: 042
     Dates: start: 20050222
  14. PASPERTIN [Concomitant]
     Dosage: 10 MG/D
     Route: 048
     Dates: start: 20050222
  15. SANDIMMUNE [Suspect]
     Indication: STEM CELL TRANSPLANT
     Dosage: 240 MG/D
     Route: 048
     Dates: start: 20050216
  16. SEROPRAM [Suspect]
     Dosage: 20 MG/D
     Route: 065
  17. VFEND [Suspect]
     Dosage: 800 MG/D
     Route: 048
     Dates: start: 20050225, end: 20050226
  18. VFEND [Suspect]
     Dosage: 800 MG/D
     Route: 042
     Dates: start: 20050227, end: 20050228
  19. VFEND [Suspect]
     Dosage: 800 MG/D
     Route: 048
     Dates: start: 20050301

REACTIONS (10)
  - BRONCHOPULMONARY ASPERGILLOSIS [None]
  - CHOLESTASIS [None]
  - CONFUSIONAL STATE [None]
  - DISORIENTATION [None]
  - HALLUCINATIONS, MIXED [None]
  - MUCOSAL INFLAMMATION [None]
  - PSYCHOMOTOR RETARDATION [None]
  - PYREXIA [None]
  - SOMNOLENCE [None]
  - TRANSAMINASES INCREASED [None]
